APPROVED DRUG PRODUCT: TIOPRONIN
Active Ingredient: TIOPRONIN
Strength: 100MG
Dosage Form/Route: TABLET;ORAL
Application: A214326 | Product #001 | TE Code: AB
Applicant: TEVA PHARMACEUTICALS USA INC
Approved: Apr 26, 2021 | RLD: No | RS: No | Type: RX